FAERS Safety Report 13893539 (Version 1)
Quarter: 2017Q3

REPORT INFORMATION
  Report Type: Spontaneous
  Country: US (occurrence: US)
  Receive Date: 20170822
  Receipt Date: 20170822
  Transmission Date: 20171127
  Serious: No
  Sender: FDA-Public Use
  Company Number: US-ENDO PHARMACEUTICALS INC-2017-001432

PATIENT
  Age: 57 Year
  Sex: Male
  Weight: 165.53 kg

DRUGS (8)
  1. TESTOPEL [Suspect]
     Active Substance: TESTOSTERONE
     Indication: BLOOD TESTOSTERONE DECREASED
     Dosage: UNK, 10 PELLETS INSERTED
     Route: 058
     Dates: start: 20160712
  2. HYDROCHLOROTHIAZIDE TABLETS [Concomitant]
     Active Substance: HYDROCHLOROTHIAZIDE
     Indication: OEDEMA
  3. TESTOPEL [Suspect]
     Active Substance: TESTOSTERONE
     Dosage: UNK, 12 PELLETS INSERTED
     Route: 058
     Dates: start: 20161129
  4. ENALAPRIL [Concomitant]
     Active Substance: ENALAPRIL
     Indication: HYPERTENSION
  5. ANASTROZOLE ORAL TABLET [Concomitant]
     Indication: AROMATASE INHIBITION THERAPY
  6. HYDROCHLOROTHIAZIDE TABLETS [Concomitant]
     Active Substance: HYDROCHLOROTHIAZIDE
     Indication: HYPERTENSION
  7. TESTOPEL [Suspect]
     Active Substance: TESTOSTERONE
     Dosage: UNK, ADDITIONAL 6 PELLETS INSERTED
     Route: 058
     Dates: start: 20160830
  8. TERAZOSIN [Concomitant]
     Active Substance: TERAZOSIN\TERAZOSIN HYDROCHLORIDE
     Indication: BENIGN PROSTATIC HYPERPLASIA

REACTIONS (5)
  - Impaired healing [Recovering/Resolving]
  - Weight increased [Not Recovered/Not Resolved]
  - Prescribed overdose [Not Recovered/Not Resolved]
  - Paraesthesia [Recovered/Resolved]
  - Oedema peripheral [Not Recovered/Not Resolved]

NARRATIVE: CASE EVENT DATE: 20160712
